FAERS Safety Report 5907441-1 (Version None)
Quarter: 2008Q4

REPORT INFORMATION
  Report Type: 
  Country: None (occurrence: None)
  Receive Date: 20081003
  Receipt Date: 20080926
  Transmission Date: 20090506
  Serious: Yes (Hospitalization)
  Sender: FDA-Public Use
  Company Number: A0750331A

PATIENT
  Age: 63 Year
  Sex: Male
  Weight: 94 kg

DRUGS (10)
  1. CARVEDILOL [Suspect]
     Dosage: 12.5MG PER DAY
     Route: 048
  2. LOVAZA [Suspect]
     Dosage: 1000MG FOUR TIMES PER DAY
     Route: 048
  3. ACCUPRIL [Suspect]
     Dosage: 40MG PER DAY
     Route: 048
  4. BLINDED TRIAL MEDICATION [Suspect]
     Indication: RENAL CELL CARCINOMA
     Route: 048
     Dates: start: 20080529
  5. HUMALOG [Suspect]
     Route: 058
  6. HYDRALAZINE HYDROCHLORIDE [Suspect]
     Dosage: 25MG THREE TIMES PER DAY
  7. LEXAPRO [Suspect]
     Dosage: 20MG PER DAY
  8. NOVOLOG [Suspect]
     Dosage: 100UNIT THREE TIMES PER DAY
  9. PRAVACHOL [Suspect]
     Dosage: 40MG PER DAY
  10. ASPIRIN [Concomitant]

REACTIONS (2)
  - BRADYCARDIA [None]
  - SYNCOPE [None]
